FAERS Safety Report 9657848 (Version 3)
Quarter: 2014Q3

REPORT INFORMATION
  Report Type: Spontaneous
  Country: US (occurrence: US)
  Receive Date: 20131030
  Receipt Date: 20140819
  Transmission Date: 20150326
  Serious: Yes (Hospitalization, Other)
  Sender: FDA-Public Use
  Company Number: US-009507513-1310USA013197

PATIENT
  Sex: Female

DRUGS (1)
  1. NUVARING [Suspect]
     Active Substance: ETHINYL ESTRADIOL\ETONOGESTREL
     Indication: MENSTRUAL DISORDER
     Dosage: UNK
     Route: 067
     Dates: start: 201001, end: 20100502

REACTIONS (4)
  - Pulmonary embolism [Unknown]
  - Off label use [Unknown]
  - Cholecystectomy [Unknown]
  - Mammoplasty [Unknown]

NARRATIVE: CASE EVENT DATE: 20100502
